FAERS Safety Report 9166421 (Version 2)
Quarter: 2013Q2

REPORT INFORMATION
  Report Type: Spontaneous
  Country: JP (occurrence: JP)
  Receive Date: 20130315
  Receipt Date: 20130604
  Transmission Date: 20140414
  Serious: Yes (Death)
  Sender: FDA-Public Use
  Company Number: PHHY2013JP025645

PATIENT
  Age: 78 Year
  Sex: Male

DRUGS (12)
  1. RIVASTIGMIN [Suspect]
     Indication: DEMENTIA ALZHEIMER^S TYPE
     Dosage: 4.5 MG, ONCE A DAY
     Route: 062
     Dates: start: 20130129, end: 20130304
  2. RIVASTIGMIN [Suspect]
     Dosage: 9 MG, ONCE A DAY
     Route: 062
     Dates: start: 20130305, end: 20130305
  3. SODIUM CHLORIDE [Concomitant]
     Dosage: UNK UKN, UNK
     Dates: start: 20130215, end: 20130305
  4. ALDACTONE A [Concomitant]
     Dosage: UNK UKN, UNK
     Dates: start: 20130216, end: 20130305
  5. URSO [Concomitant]
     Dosage: UNK UKN, UNK
     Dates: start: 20130215, end: 20130305
  6. LAC-B [Concomitant]
     Dosage: UNK UKN, UNK
     Dates: start: 20130216, end: 20130305
  7. GLUCONSAN K [Concomitant]
     Dosage: UNK UKN, UNK
     Dates: start: 20130226, end: 20130305
  8. FASTIC [Concomitant]
     Dosage: UNK UKN, UNK
     Dates: start: 20130223, end: 20130305
  9. JANUVIA [Concomitant]
     Dosage: UNK UKN, UNK
     Dates: start: 20130301, end: 20130305
  10. DIART [Concomitant]
     Dosage: UNK UKN, UNK
     Dates: start: 20130301, end: 20130305
  11. NEXIUM//ESOMEPRAZOLE MAGNESIUM [Concomitant]
     Dosage: UNK UKN, UNK
     Dates: start: 20130220, end: 20130305
  12. METHYCOBAL [Concomitant]
     Dosage: UNK UKN, UNK
     Dates: start: 20130215, end: 20130305

REACTIONS (1)
  - Cardiac arrest [Fatal]
